FAERS Safety Report 6108936-0 (Version None)
Quarter: 2009Q1

REPORT INFORMATION
  Report Type: 
  Country: None (occurrence: None)
  Receive Date: 20090306
  Receipt Date: 20090224
  Transmission Date: 20090719
  Serious: Yes (Hospitalization, Other)
  Sender: FDA-Public Use
  Company Number: 1000003214

PATIENT
  Age: 24 Year
  Sex: Male
  Weight: 50 kg

DRUGS (5)
  1. ESCITALOPRAM OXALATE [Suspect]
     Dosage: 600-1000 MG (ONCE), ORAL
     Route: 048
     Dates: start: 20081210, end: 20081210
  2. SERDOLECT (12 MILLIGRAM, TABLETS) [Suspect]
     Dosage: 1200 MG (1200 MG, ONCE), ORAL
     Route: 048
     Dates: start: 20081210, end: 20081210
  3. COFFEINUM N (0.2 GRAM, TABLETS) [Suspect]
     Dosage: 2 GM (2 GM, ONCE), ORAL
     Route: 048
     Dates: start: 20081210, end: 20081210
  4. DOLORMIN (TABLETS) [Suspect]
     Dosage: 10 TABLETS (ONCE), ORAL
     Route: 048
     Dates: start: 20081210, end: 20081210
  5. ALCOHOL (LIQUID) [Suspect]
     Dosage: 300-500 ML OF WINE (ONCE), ORAL
     Route: 048
     Dates: start: 20081210, end: 20081210

REACTIONS (7)
  - AGGRESSION [None]
  - ALCOHOL USE [None]
  - CONVULSION [None]
  - INTENTIONAL OVERDOSE [None]
  - SOMNOLENCE [None]
  - SUICIDE ATTEMPT [None]
  - VOMITING [None]
